FAERS Safety Report 20088221 (Version 1)
Quarter: 2021Q4

REPORT INFORMATION
  Report Type: Report from Study
  Country: US (occurrence: US)
  Receive Date: 20211118
  Receipt Date: 20211118
  Transmission Date: 20220303
  Serious: Yes (Other)
  Sender: FDA-Public Use
  Company Number: US-ABBVIE-21K-163-4161651-00

PATIENT
  Age: 32 Year
  Sex: Female

DRUGS (1)
  1. HUMIRA [Suspect]
     Active Substance: ADALIMUMAB
     Indication: Hidradenitis
     Route: 058
     Dates: start: 201910

REACTIONS (3)
  - Hysterectomy [Recovering/Resolving]
  - Post procedural complication [Recovering/Resolving]
  - Ovarian rupture [Recovering/Resolving]

NARRATIVE: CASE EVENT DATE: 20210901
